FAERS Safety Report 5524448-7 (Version None)
Quarter: 2007Q4

REPORT INFORMATION
  Report Type: 
  Country: None (occurrence: None)
  Receive Date: 20071122
  Receipt Date: 20071114
  Transmission Date: 20080405
  Serious: Yes (Hospitalization, Other)
  Sender: FDA-Public Use
  Company Number: PHBS2007ES19036

PATIENT
  Age: 45 Year

DRUGS (2)
  1. GLEEVEC [Suspect]
     Indication: CHRONIC MYELOID LEUKAEMIA
     Dosage: 600 MG/D
     Route: 065
  2. GLEEVEC [Suspect]
     Dosage: 400 MG/D
     Route: 065

REACTIONS (2)
  - ARRHYTHMIA [None]
  - CEREBROVASCULAR ACCIDENT [None]
